FAERS Safety Report 4878502-3 (Version None)
Quarter: 2006Q1

REPORT INFORMATION
  Report Type: 
  Country: None (occurrence: None)
  Receive Date: 20060110
  Receipt Date: 20060110
  Transmission Date: 20060701
  Serious: Yes (Life-Threatening, Hospitalization)
  Sender: FDA-Public Use
  Company Number: None

PATIENT
  Age: 55 Year
  Sex: Male
  Weight: 76.1 kg

DRUGS (11)
  1. CYTOXAN [Suspect]
     Indication: ACUTE MYELOID LEUKAEMIA
     Dosage: 4600 MG
     Dates: start: 20051126, end: 20051127
  2. CYTOXAN [Suspect]
     Indication: CHEMOTHERAPY
     Dosage: 4600 MG
     Dates: start: 20051126, end: 20051127
  3. FLUCONAZOLE [Suspect]
     Dates: start: 20051129, end: 20051130
  4. CHLORDEXIDINE [Concomitant]
  5. LEVOTHYROXINE SODIUM [Concomitant]
  6. OXYCONTIN [Concomitant]
  7. ACTIGALL [Concomitant]
  8. LANSOPRAZOLE [Concomitant]
  9. ACYCLOVIR [Concomitant]
  10. CYCLOSPORINE [Concomitant]
  11. VORICONAZOLE [Suspect]

REACTIONS (10)
  - ACIDOSIS [None]
  - ALANINE AMINOTRANSFERASE ABNORMAL [None]
  - ASPARTATE AMINOTRANSFERASE ABNORMAL [None]
  - BLOOD CREATININE ABNORMAL [None]
  - HYPOTENSION [None]
  - HYPOXIA [None]
  - KLEBSIELLA INFECTION [None]
  - MULTI-ORGAN FAILURE [None]
  - RESPIRATORY FAILURE [None]
  - SEPSIS [None]
